FAERS Safety Report 6444322-1 (Version None)
Quarter: 2009Q4

REPORT INFORMATION
  Report Type: 
  Country: None (occurrence: None)
  Receive Date: 20091118
  Receipt Date: 20091109
  Transmission Date: 20100525
  Serious: Yes (Hospitalization, Other)
  Sender: FDA-Public Use
  Company Number: US-ELI_LILLY_AND_COMPANY-US200909000289

PATIENT
  Sex: Female

DRUGS (10)
  1. BYETTA [Suspect]
     Indication: TYPE 2 DIABETES MELLITUS
     Dosage: 5 UG, 2/D
     Dates: start: 20071011, end: 20090831
  2. METFORMIN HCL [Concomitant]
     Indication: TYPE 2 DIABETES MELLITUS
     Dosage: 1000 MG, 2/D
     Route: 048
  3. GLUCOTROL XL [Concomitant]
     Indication: TYPE 2 DIABETES MELLITUS
     Dosage: 10 UG, 2/D
  4. LEVOXYL [Concomitant]
     Indication: HYPOTHYROIDISM
     Dosage: 88 UG, DAILY (1/D)
  5. NORVASC [Concomitant]
     Indication: HYPERTENSION
     Dosage: 10 MG, DAILY (1/D)
     Route: 048
  6. ACCUPRIL [Concomitant]
     Indication: HYPERTENSION
     Dosage: 40 MG, DAILY (1/D)
  7. TOPROL-XL [Concomitant]
     Indication: CORONARY ARTERY DISEASE
     Dosage: 150 MG, DAILY (1/D)
     Route: 048
  8. LIPITOR [Concomitant]
     Indication: DYSLIPIDAEMIA
     Dosage: 40 MG, DAILY (1/D)
     Route: 048
  9. CALCIUM + VITAMIN D [Concomitant]
     Indication: OSTEOPOROSIS
     Dosage: 600 MG, 2/D
     Route: 048
  10. MULTI-VITAMIN [Concomitant]
     Dosage: UNK, DAILY (1/D)

REACTIONS (1)
  - CEREBROVASCULAR ACCIDENT [None]
